FAERS Safety Report 17052011 (Version 2)
Quarter: 2019Q4

REPORT INFORMATION
  Report Type: Spontaneous
  Country: NZ (occurrence: NZ)
  Receive Date: 20191120
  Receipt Date: 20191210
  Transmission Date: 20200122
  Serious: Yes (Death)
  Sender: FDA-Public Use
  Company Number: NZ-MYLANLABS-2019M1112414

PATIENT
  Age: 26 Year
  Sex: Male

DRUGS (1)
  1. LOGEM [Suspect]
     Active Substance: LAMOTRIGINE
     Indication: SEIZURE
     Dosage: UNK

REACTIONS (2)
  - Seizure [Fatal]
  - Product substitution issue [Unknown]

NARRATIVE: CASE EVENT DATE: 2019
